FAERS Safety Report 15091638 (Version 1)
Quarter: 2018Q2

REPORT INFORMATION
  Report Type: Report from Study
  Country: US (occurrence: US)
  Receive Date: 20180629
  Receipt Date: 20180629
  Transmission Date: 20180711
  Serious: No
  Sender: FDA-Public Use
  Company Number: US-AMGEN-USASP2011023682

PATIENT
  Sex: Female

DRUGS (20)
  1. CRESTOR [Concomitant]
     Active Substance: ROSUVASTATIN CALCIUM
  2. RANITIDINE. [Concomitant]
     Active Substance: RANITIDINE
  3. PSYLLIUM HUSK                      /00029102/ [Concomitant]
     Active Substance: HERBALS\PLANTAGO OVATA SEED COAT
  4. LISINOPRIL. [Concomitant]
     Active Substance: LISINOPRIL
  5. PLAVIX [Concomitant]
     Active Substance: CLOPIDOGREL BISULFATE
  6. FLAXSEED [Concomitant]
     Active Substance: FLAX SEED
  7. AFEDITAB [Concomitant]
  8. DETROL LA [Concomitant]
     Active Substance: TOLTERODINE TARTRATE
  9. OSTEO BI-FLEX [Concomitant]
     Active Substance: CHONDROITIN SULFATE A\GLUCOSAMINE
  10. PROLIA [Suspect]
     Active Substance: DENOSUMAB
     Indication: OSTEOPOROSIS POSTMENOPAUSAL
     Dosage: 60 MG, Q6MO
     Dates: start: 201103
  11. FUROSEMIDE. [Concomitant]
     Active Substance: FUROSEMIDE
  12. FLECTOR                            /00372302/ [Concomitant]
     Active Substance: DICLOFENAC SODIUM
  13. RESTASIS [Concomitant]
     Active Substance: CYCLOSPORINE
  14. VITAMIN B12 [Concomitant]
     Active Substance: CYANOCOBALAMIN
  15. MIRALAX [Concomitant]
     Active Substance: POLYETHYLENE GLYCOL 3350
  16. CALCIUM WITH VITAMIN D             /00944201/ [Concomitant]
     Active Substance: CALCIUM CARBONATE\CHOLECALCIFEROL
     Dosage: UNK
     Dates: start: 201103
  17. ALLOPURINOL. [Concomitant]
     Active Substance: ALLOPURINOL
  18. SKELAXIN [Concomitant]
     Active Substance: METAXALONE
  19. FISH OIL [Concomitant]
     Active Substance: FISH OIL
  20. SYSTANE (HYPROMELLOSE 2910 (4000 MPA.S)) [Concomitant]
     Active Substance: HYPROMELLOSE 2910 (4000 MPA.S)

REACTIONS (2)
  - Renal disorder [Unknown]
  - Hypercalcaemia [Unknown]
